FAERS Safety Report 13704366 (Version 1)
Quarter: 2017Q2

REPORT INFORMATION
  Report Type: Spontaneous
  Country: US (occurrence: US)
  Receive Date: 20170630
  Receipt Date: 20170630
  Transmission Date: 20170830
  Serious: No
  Sender: FDA-Public Use
  Company Number: US-ENDO PHARMACEUTICALS INC-2016-005315

PATIENT
  Age: 75 Year
  Sex: Female
  Weight: 58.11 kg

DRUGS (8)
  1. LORAZEPAM TABLETS 0.5MG [Suspect]
     Active Substance: LORAZEPAM
     Route: 048
     Dates: start: 2016, end: 2016
  2. MELATONIN [Concomitant]
     Active Substance: MELATONIN
     Indication: SLEEP DISORDER
  3. LYRICA [Suspect]
     Active Substance: PREGABALIN
     Indication: NEUROPATHY PERIPHERAL
     Route: 048
     Dates: start: 20160731
  4. LORAZEPAM TABLETS 0.5MG [Suspect]
     Active Substance: LORAZEPAM
     Indication: ANXIETY
     Route: 048
     Dates: start: 2016, end: 2016
  5. CALCIUM [Concomitant]
     Active Substance: CALCIUM
     Indication: PRODUCT USED FOR UNKNOWN INDICATION
  6. LORAZEPAM TABLETS 0.5MG [Suspect]
     Active Substance: LORAZEPAM
     Route: 048
     Dates: start: 2016
  7. LORAZEPAM TABLETS 0.5MG [Suspect]
     Active Substance: LORAZEPAM
     Route: 048
     Dates: start: 201604, end: 2016
  8. VITAMINS [Concomitant]
     Active Substance: VITAMINS
     Indication: VITAMIN SUPPLEMENTATION

REACTIONS (5)
  - Lip disorder [Not Recovered/Not Resolved]
  - Intentional product use issue [Not Recovered/Not Resolved]
  - Vision blurred [Recovered/Resolved]
  - Hyperhidrosis [Unknown]
  - Nocturia [Not Recovered/Not Resolved]

NARRATIVE: CASE EVENT DATE: 2016
